FAERS Safety Report 22019778 (Version 3)
Quarter: 2023Q1

REPORT INFORMATION
  Report Type: Spontaneous
  Country: JP (occurrence: JP)
  Receive Date: 20230222
  Receipt Date: 20230319
  Transmission Date: 20230418
  Serious: Yes (Other)
  Sender: FDA-Public Use
  Company Number: JP-002147023-NVSJ2023JP003374

PATIENT
  Age: 57 Year
  Sex: Male

DRUGS (1)
  1. GILENYA [Suspect]
     Active Substance: FINGOLIMOD HYDROCHLORIDE
     Indication: Multiple sclerosis
     Dosage: 0.5 MG
     Route: 048
     Dates: end: 20211109

REACTIONS (5)
  - Tumefactive multiple sclerosis [Recovered/Resolved]
  - Hemiplegia [Recovering/Resolving]
  - Mental impairment [Not Recovered/Not Resolved]
  - Multiple sclerosis [Unknown]
  - Condition aggravated [Unknown]

NARRATIVE: CASE EVENT DATE: 20211106
